FAERS Safety Report 17467476 (Version 5)
Quarter: 2020Q3

REPORT INFORMATION
  Report Type: Spontaneous
  Country: US (occurrence: US)
  Receive Date: 20200227
  Receipt Date: 20200917
  Transmission Date: 20201102
  Serious: Yes (Hospitalization, Other)
  Sender: FDA-Public Use
  Company Number: US-PFIZER INC-2020084334

PATIENT
  Age: 83 Year
  Sex: Male
  Weight: 76.2 kg

DRUGS (4)
  1. VYNDAQEL [Suspect]
     Active Substance: TAFAMIDIS MEGLUMINE
     Dosage: 20 MG, 4X/DAY
     Dates: start: 2019
  2. VYNDAQEL [Suspect]
     Active Substance: TAFAMIDIS MEGLUMINE
     Indication: CARDIAC AMYLOIDOSIS
     Dosage: 4?20MG CAPSULES ONCE DAILY IN THE EVENING
     Route: 048
     Dates: start: 201907
  3. VYNDAQEL [Suspect]
     Active Substance: TAFAMIDIS MEGLUMINE
     Dosage: 4?20MG CAPSULES ONCE DAILY IN THE EVENING
  4. ELIQUIS [Concomitant]
     Active Substance: APIXABAN
     Indication: CEREBROVASCULAR ACCIDENT
     Dosage: 5 MG, 2X/DAY
     Route: 048
     Dates: start: 2018

REACTIONS (9)
  - Clostridium difficile infection [Recovering/Resolving]
  - Hypotension [Recovering/Resolving]
  - Dyspnoea [Recovered/Resolved]
  - Dehydration [Unknown]
  - Blood sodium decreased [Recovering/Resolving]
  - Therapeutic response unexpected [Recovering/Resolving]
  - Off label use [Unknown]
  - Decubitus ulcer [Recovering/Resolving]
  - Cardiac failure congestive [Unknown]

NARRATIVE: CASE EVENT DATE: 2019
